FAERS Safety Report 7982705-9 (Version None)
Quarter: 2011Q4

REPORT INFORMATION
  Report Type: 
  Country: None (occurrence: None)
  Receive Date: 20111215
  Receipt Date: 20111207
  Transmission Date: 20120403
  Serious: Yes (Death, Hospitalization)
  Sender: FDA-Public Use
  Company Number: GB-ROCHE-751170

PATIENT
  Sex: Male
  Weight: 89 kg

DRUGS (28)
  1. MIRCERA [Suspect]
     Dosage: DATE OF LAST DOSE PRIOR TO SAE:27 APRIL 2011
     Route: 058
  2. DIPYRIDAMOLE [Concomitant]
     Dates: start: 20101225, end: 20110518
  3. OMEPRAZOLE [Concomitant]
  4. LANTHANUM CARBONATE [Concomitant]
     Dates: start: 20090826, end: 20110518
  5. CHLORPHENIRAMINE MALEATE [Concomitant]
     Dates: start: 20101101, end: 20110518
  6. OMEPRAZOLE [Concomitant]
  7. ALFACALCIDOL [Concomitant]
     Dates: start: 20110210, end: 20110518
  8. ASPIRIN [Concomitant]
     Dates: start: 20041109, end: 20110518
  9. AMIODARONE HCL [Concomitant]
  10. CALFINA [Concomitant]
     Dosage: TDD: 6 TABS
  11. SIMVASTATIN [Concomitant]
     Dates: start: 20071122, end: 20110518
  12. CALCIUM CARBONATE [Concomitant]
     Dosage: TDD : X2
     Dates: start: 20081106, end: 20110518
  13. RAMIPRIL [Concomitant]
     Dates: start: 20080724, end: 20101101
  14. OMEPRAZOLE [Concomitant]
     Dates: start: 20110113, end: 20110518
  15. CLOPIDOGREL [Concomitant]
     Dates: start: 20110113, end: 20110518
  16. ALFACALCIDOL [Concomitant]
  17. AMITRIPTYLINE HCL [Concomitant]
     Dosage: DRUG REPORTED AS : AMTRIPYLLINE.
  18. ZOPICLONE [Concomitant]
     Dates: start: 20110513, end: 20110516
  19. OMEPRAZOLE [Concomitant]
     Dates: start: 20110113, end: 20110518
  20. DIPYRIDAMOLE [Concomitant]
  21. AMLODIPINE [Concomitant]
  22. ENOXAPARIN [Concomitant]
     Dates: start: 20101222, end: 20110113
  23. MIRCERA [Suspect]
     Indication: NEPHROGENIC ANAEMIA
     Dosage: LAST DOSE PRIOR TO SAE: 30 NOV2010, FREQUENCY REPORTED AS MONTH, NOT GIVEN DURING EVENT.
     Route: 058
  24. GLICLAZIDE [Concomitant]
     Dates: start: 20080211, end: 20110518
  25. ALFACALCIDOL [Concomitant]
  26. ALFACALCIDOL [Concomitant]
     Dosage: TDD: 6 TABLETS
  27. CALCIUM CARBONATE [Concomitant]
  28. MIDODRINE HYDROCHLORIDE [Concomitant]
     Dates: start: 20101229, end: 20110518

REACTIONS (6)
  - HYPOGLYCAEMIA [None]
  - FLUID OVERLOAD [None]
  - FALL [None]
  - PLEURAL EFFUSION [None]
  - HEAD INJURY [None]
  - CARDIAC ARREST [None]
